FAERS Safety Report 7575346-9 (Version None)
Quarter: 2011Q2

REPORT INFORMATION
  Report Type: 
  Country: None (occurrence: None)
  Receive Date: 20110627
  Receipt Date: 20110620
  Transmission Date: 20111010
  Serious: Yes (Other)
  Sender: FDA-Public Use
  Company Number: CA-PFIZER INC-2011137127

PATIENT
  Age: 75 Year
  Sex: Female

DRUGS (6)
  1. NORVASC [Concomitant]
     Dosage: UNK
  2. METFORMIN [Concomitant]
     Dosage: UNK
  3. TRIAZIDE [Concomitant]
     Dosage: UNK
  4. XALATAN [Suspect]
     Indication: GLAUCOMA
     Dosage: 1 GTT, 1X/DAY AT BEDTIME
     Route: 047
  5. COMBIGAN [Concomitant]
     Dosage: UNK
  6. TRUSOPT [Concomitant]
     Dosage: UNK

REACTIONS (2)
  - INTRAOCULAR PRESSURE INCREASED [None]
  - CATARACT OPERATION [None]
